FAERS Safety Report 6852488-4 (Version None)
Quarter: 2010Q3

REPORT INFORMATION
  Report Type: 
  Country: None (occurrence: None)
  Receive Date: 20100717
  Receipt Date: 20071112
  Transmission Date: 20110219
  Serious: No
  Sender: FDA-Public Use
  Company Number: US-PFIZER INC-2007097354

PATIENT
  Sex: Male
  Weight: 97.5 kg

DRUGS (4)
  1. CHANTIX [Suspect]
     Indication: SMOKING CESSATION THERAPY
     Dates: start: 20070810, end: 20071026
  2. DAILY VITAMINS [Concomitant]
  3. VITAMIN E [Concomitant]
  4. ALL OTHER THERAPEUTIC PRODUCTS [Concomitant]
     Indication: ABDOMINAL DISCOMFORT

REACTIONS (7)
  - DEPRESSION [None]
  - DYSPNOEA [None]
  - INCREASED APPETITE [None]
  - INITIAL INSOMNIA [None]
  - NIGHTMARE [None]
  - THINKING ABNORMAL [None]
  - WEIGHT INCREASED [None]
